FAERS Safety Report 5413724-4 (Version None)
Quarter: 2007Q3

REPORT INFORMATION
  Report Type: 
  Country: None (occurrence: None)
  Receive Date: 20070810
  Receipt Date: 20070731
  Transmission Date: 20080115
  Serious: Yes (Death, Hospitalization)
  Sender: FDA-Public Use
  Company Number: 159638USA

PATIENT
  Age: 41 Year
  Sex: Female

DRUGS (1)
  1. COPAXONE [Suspect]
     Indication: MULTIPLE SCLEROSIS
     Dosage: (20 MG) SUBCUTANEOUS
     Route: 058
     Dates: start: 19980607

REACTIONS (2)
  - ANEURYSM [None]
  - INTESTINAL OBSTRUCTION [None]
